FAERS Safety Report 5825051-1 (Version None)
Quarter: 2008Q3

REPORT INFORMATION
  Report Type: 
  Country: None (occurrence: None)
  Receive Date: 20080729
  Receipt Date: 20080718
  Transmission Date: 20090109
  Serious: Yes (Death)
  Sender: FDA-Public Use
  Company Number: CZ-ELI_LILLY_AND_COMPANY-CZ200807002549

PATIENT
  Age: 51 Year
  Sex: Male

DRUGS (7)
  1. ZYPREXA [Suspect]
     Indication: SCHIZOAFFECTIVE DISORDER
     Dosage: 10 MG, DAILY (1/D)
     Route: 048
     Dates: start: 20050901
  2. NEUROTOP [Concomitant]
     Indication: SCHIZOAFFECTIVE DISORDER
     Dosage: 600 MG, DAILY (1/D)
     Route: 048
  3. CHLORPROTHIXEN [Concomitant]
     Indication: SCHIZOAFFECTIVE DISORDER
     Dosage: 50 MG, DAILY (1/D)
     Route: 048
  4. MODITEN [Concomitant]
     Indication: SCHIZOAFFECTIVE DISORDER
  5. GLYVENOL [Concomitant]
     Indication: VENOUS INSUFFICIENCY
     Dosage: 400 MG, 2/D
     Route: 048
  6. ACCUZIDE [Concomitant]
     Indication: HYPERTENSION
     Dosage: 10 MG, DAILY (1/D)
     Route: 048
  7. BETAXA [Concomitant]
     Indication: HYPERTENSION
     Dosage: 20 MG, DAILY (1/D)
     Route: 048

REACTIONS (1)
  - DEATH [None]
